FAERS Safety Report 14693925 (Version 1)
Quarter: 2018Q1

REPORT INFORMATION
  Report Type: Spontaneous
  Country: JP (occurrence: JP)
  Receive Date: 20180329
  Receipt Date: 20180329
  Transmission Date: 20180509
  Serious: Yes (Other)
  Sender: FDA-Public Use
  Company Number: JP-PFIZER INC-2017526755

PATIENT
  Age: 72 Year
  Sex: Male
  Weight: 50 kg

DRUGS (12)
  1. GEMCITABINE 1G/26.3ML HOSPIRA [Suspect]
     Active Substance: GEMCITABINE\GEMCITABINE HYDROCHLORIDE
     Dosage: 1000 MG, 1X/DAY
     Route: 041
     Dates: start: 20150319, end: 20150326
  2. GEMCITABINE 200MG/5.3ML HOSPIRA [Suspect]
     Active Substance: GEMCITABINE\GEMCITABINE HYDROCHLORIDE
     Dosage: 200 MG, 1X/DAY
     Route: 041
     Dates: start: 20150409, end: 20160208
  3. NOVORAPID [Concomitant]
     Active Substance: INSULIN ASPART
     Dosage: UNK
  4. MAGMITT [Concomitant]
     Active Substance: MAGNESIUM OXIDE
     Dosage: UNK
     Route: 048
  5. GEMCITABINE 1G/26.3ML HOSPIRA [Suspect]
     Active Substance: GEMCITABINE\GEMCITABINE HYDROCHLORIDE
     Dosage: 1000 MG, 1X/DAY
     Route: 041
     Dates: start: 20150409, end: 20160208
  6. NAB-PACLITAXEL [Concomitant]
     Active Substance: PACLITAXEL
     Dosage: UNK
  7. GRANISETRON [Concomitant]
     Active Substance: GRANISETRON
     Dosage: UNK
     Route: 042
  8. DEXART [Concomitant]
     Active Substance: DEXAMETHASONE SODIUM PHOSPHATE
     Dosage: UNK
  9. LANSOPRAZOLE. [Concomitant]
     Active Substance: LANSOPRAZOLE
     Dosage: UNK
     Route: 048
  10. GEMCITABINE 200MG/5.3ML HOSPIRA [Suspect]
     Active Substance: GEMCITABINE\GEMCITABINE HYDROCHLORIDE
     Dosage: 500 MG, 1X/DAY
     Route: 041
     Dates: start: 20150319, end: 20150326
  11. ABRAXANE [Suspect]
     Active Substance: PACLITAXEL
     Dosage: 100 MG, UNK
     Route: 041
  12. LANTUS [Concomitant]
     Active Substance: INSULIN GLARGINE
     Dosage: UNK

REACTIONS (7)
  - Injection site pain [Recovered/Resolved]
  - Eye haemorrhage [Unknown]
  - Neoplasm progression [Unknown]
  - Neutrophil count decreased [Recovered/Resolved]
  - Bone marrow failure [Recovered/Resolved]
  - Conjunctival hyperaemia [Unknown]
  - Platelet count decreased [Recovered/Resolved]

NARRATIVE: CASE EVENT DATE: 201503
